FAERS Safety Report 8539668-7 (Version None)
Quarter: 2012Q3

REPORT INFORMATION
  Report Type: 
  Country: None (occurrence: None)
  Receive Date: 20120726
  Receipt Date: 20111213
  Transmission Date: 20120928
  Serious: No
  Sender: FDA-Public Use
  Company Number: US-ASTRAZENECA-2006UW27589

PATIENT
  Age: 30 Year
  Sex: Female

DRUGS (11)
  1. ZYPREXA [Suspect]
     Route: 065
     Dates: end: 20000726
  2. LEVOXYL [Concomitant]
     Dosage: 0.025 MG QD
     Dates: start: 20040416
  3. ZOLOFT [Concomitant]
     Dates: start: 20010606
  4. SEROQUEL [Suspect]
     Route: 048
     Dates: start: 20010606
  5. RISPERDAL [Suspect]
     Route: 065
     Dates: start: 20000726
  6. TYLENOL PM [Concomitant]
     Dosage: 2 PILLS
     Dates: start: 20000606
  7. VITAMIN TAB [Concomitant]
     Dates: start: 20060214
  8. SEROQUEL [Suspect]
     Route: 048
     Dates: start: 20031101, end: 20050401
  9. ZYPREXA [Suspect]
     Indication: SCHIZOPHRENIA
     Dosage: 300-400 MG
     Route: 065
     Dates: start: 20000101, end: 20030201
  10. EPHEDRINE [Concomitant]
     Dosage: 2 PILLS
     Dates: start: 20000606
  11. TRAZODONE HYDROCHLORIDE [Concomitant]

REACTIONS (11)
  - BLOOD INSULIN INCREASED [None]
  - POLYCYSTIC OVARIES [None]
  - INFERTILITY [None]
  - SEDATION [None]
  - THYROID DISORDER [None]
  - TYPE 2 DIABETES MELLITUS [None]
  - DIABETES MELLITUS [None]
  - VISION BLURRED [None]
  - HYPOTHYROIDISM [None]
  - WEIGHT INCREASED [None]
  - OVARIAN CYST [None]
